FAERS Safety Report 9136275 (Version 2)
Quarter: 2013Q2

REPORT INFORMATION
  Report Type: Spontaneous
  Country: IT (occurrence: IT)
  Receive Date: 20130304
  Receipt Date: 20130501
  Transmission Date: 20140414
  Serious: Yes (Other)
  Sender: FDA-Public Use
  Company Number: IT-GLAXOSMITHKLINE-B0871378A

PATIENT
  Age: 57 Year
  Sex: Male

DRUGS (5)
  1. HEPSERA [Suspect]
     Indication: PRODUCT USED FOR UNKNOWN INDICATION
     Route: 048
     Dates: start: 20040301, end: 20111110
  2. VIREAD [Suspect]
     Indication: PRODUCT USED FOR UNKNOWN INDICATION
     Route: 048
     Dates: start: 20111110
  3. VIREAD [Suspect]
     Dosage: .5IUAX PER DAY
     Route: 048
     Dates: start: 20130219
  4. VIREAD [Suspect]
     Route: 048
     Dates: start: 20130421
  5. ZEFFIX [Suspect]
     Indication: PRODUCT USED FOR UNKNOWN INDICATION
     Route: 048
     Dates: start: 20040301, end: 20111110

REACTIONS (3)
  - Renal tubular disorder [Unknown]
  - Hypophosphataemia [Unknown]
  - Glycosuria [Unknown]
